FAERS Safety Report 10256108 (Version 1)
Quarter: 2014Q2

REPORT INFORMATION
  Report Type: Spontaneous
  Country: FR (occurrence: FR)
  Receive Date: 20140624
  Receipt Date: 20140624
  Transmission Date: 20141212
  Serious: Yes (Hospitalization, Other)
  Sender: FDA-Public Use
  Company Number: FR-PFIZER INC-2014167981

PATIENT
  Age: 90 Year
  Sex: Female

DRUGS (6)
  1. ALDACTONE [Suspect]
     Indication: HYPERTENSION
     Dosage: 50 MG, 1X/DAY
     Route: 048
     Dates: start: 2003, end: 20130829
  2. FUROSEMIDE [Suspect]
     Dosage: 20 MG, 2X/DAY
     Route: 048
     Dates: end: 20130829
  3. DOLIPRANE [Suspect]
     Dosage: 1000 MG, 3X/DAY
     Route: 048
  4. ZYMAD [Concomitant]
     Dosage: 80000 IU, EVERY 14 DAYS
     Route: 048
     Dates: start: 20130827, end: 20130915
  5. CEFTRIAXONE [Concomitant]
     Dosage: 1 G, 1X/DAY
     Route: 042
     Dates: start: 20130827, end: 20130915
  6. LOVENOX [Concomitant]
     Indication: PROPHYLAXIS
     Dosage: 1 DF, 1X/DAY
     Route: 058
     Dates: start: 20130827, end: 20130915

REACTIONS (6)
  - Hepatocellular injury [Recovering/Resolving]
  - Fall [Unknown]
  - Subcutaneous haematoma [Unknown]
  - Erysipelas [Unknown]
  - Renal failure [Unknown]
  - Gastric ulcer [Unknown]
